APPROVED DRUG PRODUCT: ZOVIRAX
Active Ingredient: ACYCLOVIR SODIUM
Strength: EQ 1GM BASE/VIAL **Federal Register determination that product was not discontinued or withdrawn for safety or effectiveness reasons**
Dosage Form/Route: INJECTABLE;INJECTION
Application: N018603 | Product #002
Applicant: GLAXOSMITHKLINE
Approved: Jun 29, 1989 | RLD: Yes | RS: No | Type: DISCN